FAERS Safety Report 10214493 (Version 1)
Quarter: 2014Q2

REPORT INFORMATION
  Report Type: Spontaneous
  Country: CA (occurrence: CA)
  Receive Date: 20140603
  Receipt Date: 20140603
  Transmission Date: 20141212
  Serious: Yes (Other)
  Sender: FDA-Public Use
  Company Number: CA-AMGEN INC.-CANSP2014039652

PATIENT
  Age: 86 Year
  Sex: Female

DRUGS (3)
  1. PROLIA [Suspect]
     Indication: OSTEOPOROSIS
     Dosage: 60 MG, Q6MO
     Route: 058
     Dates: start: 20131210
  2. VITAMIN D                          /00107901/ [Concomitant]
  3. CALTRATE                           /00944201/ [Concomitant]

REACTIONS (4)
  - Oral surgery [Not Recovered/Not Resolved]
  - Tooth disorder [Not Recovered/Not Resolved]
  - Pain in jaw [Not Recovered/Not Resolved]
  - Impaired healing [Not Recovered/Not Resolved]
